FAERS Safety Report 8838339 (Version 1)
Quarter: 2012Q4

REPORT INFORMATION
  Report Type: 
  Country: GB (occurrence: GB)
  Receive Date: 20121012
  Receipt Date: 20121012
  Transmission Date: 20130627
  Serious: Yes (Other)
  Sender: FDA-Public Use
  Company Number: PHHY2012GB088187

PATIENT
  Age: 6 Month
  Sex: Female

DRUGS (1)
  1. FLUOXETINE [Suspect]
     Route: 064

REACTIONS (2)
  - Kawasaki^s disease [Unknown]
  - Foetal exposure during pregnancy [Unknown]
